FAERS Safety Report 16446188 (Version 2)
Quarter: 2019Q3

REPORT INFORMATION
  Report Type: Report from Study
  Country: SE (occurrence: SE)
  Receive Date: 20190618
  Receipt Date: 20190712
  Transmission Date: 20191004
  Serious: Yes (Hospitalization)
  Sender: FDA-Public Use
  Company Number: SE-SEATTLE GENETICS-2019SGN02082

PATIENT

DRUGS (12)
  1. ETOPOSIDE. [Suspect]
     Active Substance: ETOPOSIDE
     Dosage: 450 MILLIGRAM/SQ. METER
     Route: 065
     Dates: start: 20190626
  2. BRENTUXIMAB VEDOTIN-MPI [Suspect]
     Active Substance: BRENTUXIMAB VEDOTIN
     Dosage: 110 MILLIGRAM/SQ. METER
     Route: 065
     Dates: start: 20190626
  3. BRENTUXIMAB VEDOTIN-MPI [Suspect]
     Active Substance: BRENTUXIMAB VEDOTIN
     Indication: HODGKIN^S DISEASE
     Dosage: 110 MILLIGRAM/SQ. METER
     Route: 065
     Dates: start: 20190528
  4. DACARBAZINE. [Suspect]
     Active Substance: DACARBAZINE
     Dosage: 840 MILLIGRAM/SQ. METER
     Route: 065
     Dates: start: 20190628
  5. DOXORUBICIN [Suspect]
     Active Substance: DOXORUBICIN
     Indication: HODGKIN^S DISEASE
     Dosage: 60 MILLIGRAM/SQ. METER
     Route: 065
     Dates: start: 20190529
  6. ETOPOSIDE. [Suspect]
     Active Substance: ETOPOSIDE
     Indication: HODGKIN^S DISEASE
     Dosage: 450 MILLIGRAM/SQ. METER
     Route: 065
     Dates: start: 20190529
  7. DEXAMETHASONE. [Suspect]
     Active Substance: DEXAMETHASONE
     Dosage: 160 MILLIGRAM/SQ. METER
     Route: 065
     Dates: start: 20190626
  8. DOXORUBICIN [Suspect]
     Active Substance: DOXORUBICIN
     Dosage: 50 MILLIGRAM/SQ. METER
     Route: 065
     Dates: start: 20190626
  9. CYCLOPHOSPHAMIDE. [Suspect]
     Active Substance: CYCLOPHOSPHAMIDE
     Indication: HODGKIN^S DISEASE
     Dosage: 1000 MILLIGRAM/SQ. METER
     Route: 065
     Dates: start: 20190529
  10. DACARBAZINE. [Suspect]
     Active Substance: DACARBAZINE
     Indication: HODGKIN^S DISEASE
     Dosage: 840 MILLIGRAM/SQ. METER
     Route: 065
     Dates: start: 20190530
  11. CYCLOPHOSPHAMIDE. [Suspect]
     Active Substance: CYCLOPHOSPHAMIDE
     Dosage: 850 MILLIGRAM/SQ. METER
     Route: 065
     Dates: start: 20190626
  12. DEXAMETHASONE. [Suspect]
     Active Substance: DEXAMETHASONE
     Indication: HODGKIN^S DISEASE
     Dosage: 272 MILLIGRAM/SQ. METER
     Route: 065
     Dates: start: 20190529

REACTIONS (2)
  - Febrile neutropenia [Recovered/Resolved]
  - Febrile neutropenia [Recovered/Resolved]

NARRATIVE: CASE EVENT DATE: 20190607
